FAERS Safety Report 6692063-8 (Version None)
Quarter: 2010Q2

REPORT INFORMATION
  Report Type: 
  Country: None (occurrence: None)
  Receive Date: 20100422
  Receipt Date: 20100414
  Transmission Date: 20101027
  Serious: Yes (Hospitalization)
  Sender: FDA-Public Use
  Company Number: PHHY2010US16302

PATIENT
  Sex: Female

DRUGS (12)
  1. VOLTAREN-XR [Suspect]
     Dosage: UNK
     Route: 048
  2. SPIRONOLACTONE [Suspect]
     Dosage: UNK
  3. LEVOTHYROXINE [Suspect]
     Dosage: UNK
  4. ASPIRIN [Suspect]
     Dosage: UNK
  5. METFORMIN HCL [Suspect]
     Dosage: UNK
  6. FUROSEMIDE [Suspect]
     Dosage: UNK
  7. KLOR-CON [Suspect]
     Dosage: UNK
  8. XANAX [Suspect]
     Dosage: UNK
  9. SIMVASTATIN [Concomitant]
     Dosage: UNK
  10. DIOVAN [Concomitant]
     Dosage: UNK
  11. WARFARIN SODIUM [Concomitant]
     Dosage: UNK
  12. CITALOPRAM HYDROBROMIDE [Concomitant]
     Dosage: UNK

REACTIONS (2)
  - MALAISE [None]
  - PULMONARY EMBOLISM [None]
